FAERS Safety Report 17241192 (Version 2)
Quarter: 2025Q2

REPORT INFORMATION
  Report Type: Spontaneous
  Country: DE (occurrence: DE)
  Receive Date: 20200107
  Receipt Date: 20250514
  Transmission Date: 20250717
  Serious: Yes (Death, Life-Threatening, Hospitalization, Other)
  Sender: TEVA
  Company Number: DE-SA-2019SA282143

PATIENT
  Age: 83 Year
  Sex: Male

DRUGS (33)
  1. OXALIPLATIN [Suspect]
     Active Substance: OXALIPLATIN
     Indication: Pancreatic carcinoma metastatic
     Route: 042
     Dates: start: 20180601, end: 20180601
  2. HALOPERIDOL [Concomitant]
     Active Substance: HALOPERIDOL
     Indication: Agitation
     Route: 065
     Dates: start: 20180606, end: 20180607
  3. LAXANS [Concomitant]
     Indication: Constipation prophylaxis
     Route: 065
     Dates: start: 20180527, end: 20180605
  4. FLUMAZENIL [Concomitant]
     Active Substance: FLUMAZENIL
     Indication: Altered state of consciousness
     Route: 065
     Dates: start: 20180608, end: 20180608
  5. SULBACTAM [Concomitant]
     Active Substance: SULBACTAM
     Indication: Product used for unknown indication
     Route: 065
     Dates: start: 20180608, end: 20180611
  6. METAMIZOLE [Concomitant]
     Active Substance: METAMIZOLE
     Indication: Pain
     Route: 065
     Dates: start: 20180115, end: 20180605
  7. AMPHO-MORONAL [Concomitant]
     Active Substance: AMPHOTERICIN B
     Indication: Mucosal inflammation
     Route: 065
  8. HERBALS\PHENYL SALICYLATE [Concomitant]
     Active Substance: HERBALS\PHENYL SALICYLATE
     Indication: Product used for unknown indication
     Route: 065
     Dates: start: 20180611
  9. LEUCOVORIN [Suspect]
     Active Substance: LEUCOVORIN\LEUCOVORIN CALCIUM
     Indication: Pancreatic carcinoma metastatic
     Route: 042
     Dates: start: 20180601, end: 20180601
  10. BUPRENORPHINE HYDROCHLORIDE [Concomitant]
     Active Substance: BUPRENORPHINE HYDROCHLORIDE
     Indication: Product used for unknown indication
     Route: 065
     Dates: start: 20180606, end: 20180611
  11. ELECTROLYTES NOS\MINERALS [Concomitant]
     Active Substance: ELECTROLYTES NOS\MINERALS
     Indication: Product used for unknown indication
     Route: 065
     Dates: start: 20180603, end: 20180608
  12. SPIRONOLACTONE [Concomitant]
     Active Substance: SPIRONOLACTONE
     Indication: Cardiac failure
     Route: 065
     Dates: start: 20180518
  13. SPIRONOLACTONE [Concomitant]
     Active Substance: SPIRONOLACTONE
     Indication: Cardiac failure
     Route: 065
     Dates: start: 20180530, end: 20180603
  14. CERTOPARIN SODIUM [Concomitant]
     Active Substance: CERTOPARIN SODIUM
     Indication: Thrombosis prophylaxis
     Route: 065
     Dates: start: 20180518, end: 20180608
  15. METOPROLOL [Concomitant]
     Active Substance: METOPROLOL
     Indication: Hypertension
     Route: 065
  16. MIRTAZAPINE [Concomitant]
     Active Substance: MIRTAZAPINE
     Indication: Agitation
     Route: 065
     Dates: start: 20180603, end: 20180610
  17. ONDANSETRON [Concomitant]
     Active Substance: ONDANSETRON
     Indication: Nausea
     Route: 065
     Dates: start: 20180607, end: 20180609
  18. AMPICILLIN [Concomitant]
     Active Substance: AMPICILLIN
     Indication: Product used for unknown indication
     Route: 065
     Dates: start: 20180608, end: 20180611
  19. FLUOROURACIL [Suspect]
     Active Substance: FLUOROURACIL
     Indication: Pancreatic carcinoma metastatic
     Route: 042
     Dates: start: 20180603, end: 20180603
  20. FLUOROURACIL [Suspect]
     Active Substance: FLUOROURACIL
     Indication: Pancreatic carcinoma metastatic
     Route: 042
     Dates: start: 20180601, end: 20180601
  21. FLUOROURACIL [Suspect]
     Active Substance: FLUOROURACIL
     Indication: Pancreatic carcinoma metastatic
     Route: 042
     Dates: start: 20180601, end: 20180601
  22. FLUOROURACIL [Suspect]
     Active Substance: FLUOROURACIL
     Indication: Pancreatic carcinoma metastatic
     Route: 042
     Dates: start: 20180609, end: 20180609
  23. NORSPAN [Concomitant]
     Active Substance: BUPRENORPHINE
     Indication: Pain
     Route: 065
     Dates: start: 20180605, end: 20180605
  24. DIMENHYDRINATE [Concomitant]
     Active Substance: DIMENHYDRINATE
     Indication: Nausea
     Route: 065
     Dates: start: 20180602, end: 20180608
  25. MCP ABZ [Concomitant]
     Indication: Nausea
     Route: 065
     Dates: start: 20180530, end: 20180605
  26. AMINO ACIDS\DEXTROSE\ELECTROLYTES NOS\SOYBEAN OIL [Concomitant]
     Active Substance: AMINO ACIDS\DEXTROSE\ELECTROLYTES NOS\SOYBEAN OIL
     Indication: Product used for unknown indication
     Route: 065
     Dates: start: 20180604, end: 20180607
  27. PANTOPRAZOLE [Concomitant]
     Active Substance: PANTOPRAZOLE
     Indication: Product used for unknown indication
     Route: 065
     Dates: start: 20180115, end: 20180611
  28. JONOSTERIL [Concomitant]
     Indication: Product used for unknown indication
     Route: 065
     Dates: start: 20180609, end: 20180611
  29. TORSEMIDE [Concomitant]
     Active Substance: TORSEMIDE
     Indication: Cardiac failure
     Route: 065
     Dates: start: 20180528, end: 20180607
  30. GLANDOMED [Concomitant]
     Indication: Product used for unknown indication
     Dates: start: 20180611
  31. DEXAMETHASONE [Concomitant]
     Active Substance: DEXAMETHASONE
     Indication: Product used for unknown indication
     Route: 065
     Dates: start: 20180607, end: 20180607
  32. MORPHINE [Concomitant]
     Active Substance: MORPHINE
     Indication: Pancreatic carcinoma metastatic
     Route: 065
     Dates: start: 20180527
  33. NOVALGIN [Concomitant]
     Indication: Pancreatic carcinoma metastatic
     Route: 065
     Dates: start: 20180525, end: 20180605

REACTIONS (3)
  - Sepsis [Fatal]
  - Stomatitis [Not Recovered/Not Resolved]
  - Condition aggravated [Not Recovered/Not Resolved]

NARRATIVE: CASE EVENT DATE: 20180610
